FAERS Safety Report 5271118-9 (Version None)
Quarter: 2007Q1

REPORT INFORMATION
  Report Type: 
  Country: None (occurrence: None)
  Receive Date: 20061214
  Receipt Date: 20060830
  Transmission Date: 20070707
  Serious: Yes (Hospitalization)
  Sender: FDA-Public Use
  Company Number: 2006108472

PATIENT
  Age: 30 Year
  Sex: Female
  Weight: 61.6892 kg

DRUGS (1)
  1. BEXTRA [Suspect]
     Indication: BACK INJURY
     Dosage: 1 IN 1 D
     Dates: start: 20030101

REACTIONS (4)
  - ACNE [None]
  - DEPRESSION [None]
  - DYSPNOEA [None]
  - PALPITATIONS [None]
